FAERS Safety Report 9543804 (Version 1)
Quarter: 2013Q2

REPORT INFORMATION
  Report Type: Spontaneous
  Country: US (occurrence: None)
  Receive Date: 20130524
  Receipt Date: 20130524
  Transmission Date: 20140414
  Serious: No
  Sender: FDA-Public Use
  Company Number: PHEH2013US002588

PATIENT
  Age: 42 Year
  Sex: Female
  Weight: 90.7 kg

DRUGS (3)
  1. GILENYA (FINGOLIMOD) CAPSULE, 0.5 MG [Suspect]
     Indication: MULTIPLE SCLEROSIS
     Route: 048
  2. MULTI-VIT (VITAMINS NOS) [Concomitant]
  3. VIT D3 (COLECALCIFEROL) [Concomitant]

REACTIONS (2)
  - Muscle spasticity [None]
  - Balance disorder [None]
